FAERS Safety Report 4977612-X (Version None)
Quarter: 2006Q2

REPORT INFORMATION
  Report Type: 
  Country: None (occurrence: None)
  Receive Date: 20060414
  Receipt Date: 20060405
  Transmission Date: 20061013
  Serious: Yes (Hospitalization, Other)
  Sender: FDA-Public Use
  Company Number: 13744

PATIENT
  Age: 35 Year
  Sex: Female

DRUGS (7)
  1. METHOTREXATE [Suspect]
     Indication: ACUTE PROMYELOCYTIC LEUKAEMIA
     Dosage: 15 MG/M2 WEEKLY IM
     Route: 030
     Dates: start: 20041027, end: 20041123
  2. METHOTREXATE [Suspect]
     Indication: ACUTE PROMYELOCYTIC LEUKAEMIA
     Dosage: 5 MG/M2 WEEKLY IM
     Route: 030
     Dates: start: 20041130, end: 20050107
  3. METHOTREXATE [Suspect]
     Indication: ACUTE PROMYELOCYTIC LEUKAEMIA
     Dosage: 15 MG/M2 WEEKLY IM
     Route: 030
     Dates: start: 20051027, end: 20051215
  4. CHEMOTHERAPEUTIC AGENTS, CONTROL FOR GEMTUZUMAB OZOGAMICIN [Suspect]
     Indication: ACUTE PROMYELOCYTIC LEUKAEMIA
  5. MERCAPTOPURINE [Suspect]
     Indication: ACUTE PROMYELOCYTIC LEUKAEMIA
     Dosage: 75 MG DAILY PO
     Route: 049
     Dates: start: 20041027, end: 20041128
  6. MERCAPTOPURINE [Suspect]
     Indication: ACUTE PROMYELOCYTIC LEUKAEMIA
     Dates: start: 20041029, end: 20050111
  7. MERCAPTOPURINE [Suspect]
     Indication: ACUTE PROMYELOCYTIC LEUKAEMIA
     Dosage: 75 MG DAILY PO
     Route: 048
     Dates: start: 20051027, end: 20051217

REACTIONS (8)
  - BLOOD FIBRINOGEN DECREASED [None]
  - CHLOROMA [None]
  - EAR INFECTION [None]
  - FIBRIN D DIMER INCREASED [None]
  - LEUKAEMIA RECURRENT [None]
  - MALIGNANT NEOPLASM PROGRESSION [None]
  - MASTOIDITIS [None]
  - PROTHROMBIN TIME SHORTENED [None]
